FAERS Safety Report 25050135 (Version 1)
Quarter: 2025Q1

REPORT INFORMATION
  Report Type: Spontaneous
  Country: US (occurrence: None)
  Receive Date: 20250306
  Receipt Date: 20250306
  Transmission Date: 20250408
  Serious: Yes (Disabling)
  Sender: FDA-CTU
  Company Number: None

PATIENT
  Age: 68 Year
  Sex: Female
  Weight: 69.75 kg

DRUGS (1)
  1. EZETIMIBE [Suspect]
     Active Substance: EZETIMIBE
     Indication: Low density lipoprotein abnormal
     Dosage: 1 TABLET AT BEDTIME
     Route: 048
     Dates: start: 20250101, end: 20250305

REACTIONS (8)
  - Nasopharyngitis [None]
  - Lymphadenopathy [None]
  - Cough [None]
  - Throat irritation [None]
  - Sinusitis [None]
  - Fatigue [None]
  - Diarrhoea [None]
  - Therapy cessation [None]

NARRATIVE: CASE EVENT DATE: 20250101
